FAERS Safety Report 6142907-3 (Version None)
Quarter: 2009Q2

REPORT INFORMATION
  Report Type: 
  Country: None (occurrence: None)
  Receive Date: 20090403
  Receipt Date: 20090326
  Transmission Date: 20091009
  Serious: Yes (Death, Other)
  Sender: FDA-Public Use
  Company Number: JP-BAYER-200915206GPV

PATIENT
  Age: 43 Year
  Sex: Female
  Weight: 46 kg

DRUGS (7)
  1. FLUDARABINE PHOSPHATE [Suspect]
     Indication: ACUTE MYELOID LEUKAEMIA
     Route: 042
     Dates: start: 20071213, end: 20071217
  2. PREDNISOLONE [Suspect]
     Indication: IMMUNE SYSTEM DISORDER
     Route: 065
  3. MELPHALAN [Suspect]
     Indication: ACUTE MYELOID LEUKAEMIA
     Route: 042
     Dates: start: 20071218, end: 20071219
  4. CYCLOSPORINE [Suspect]
     Indication: PROPHYLAXIS AGAINST GRAFT VERSUS HOST DISEASE
     Route: 041
     Dates: start: 20071220, end: 20080315
  5. MYCOPHENOLATE MOFETIL [Suspect]
     Indication: PROPHYLAXIS AGAINST GRAFT VERSUS HOST DISEASE
     Route: 048
     Dates: start: 20071227, end: 20080120
  6. METHOTREXATE [Concomitant]
     Indication: PROPHYLAXIS AGAINST GRAFT VERSUS HOST DISEASE
     Dosage: SHORT-TERM
     Dates: start: 20071001
  7. CYCLOPHOSPHAMIDE [Concomitant]
     Indication: CORD BLOOD TRANSPLANT THERAPY
     Dosage: 120 MG/KG
     Route: 065
     Dates: start: 20071001

REACTIONS (3)
  - DISSEMINATED TUBERCULOSIS [None]
  - HYPOXIA [None]
  - IMMUNE SYSTEM DISORDER [None]
